FAERS Safety Report 10305547 (Version 1)
Quarter: 2014Q3

REPORT INFORMATION
  Report Type: Spontaneous
  Country: US (occurrence: None)
  Receive Date: 20140711
  Receipt Date: 20140711
  Transmission Date: 20150326
  Serious: Yes (Other)
  Sender: FDA-Public Use
  Company Number: 001759552A

PATIENT
  Age: 15 Year
  Sex: Female

DRUGS (1)
  1. X-OUT WASH-IN TREATMENT [Suspect]
     Active Substance: BENZOYL PEROXIDE
     Indication: ACNE
     Dosage: DERMAL
     Dates: start: 20140313, end: 201404

REACTIONS (1)
  - Urticaria [None]

NARRATIVE: CASE EVENT DATE: 201404
